FAERS Safety Report 23284259 (Version 1)
Quarter: 2023Q4

REPORT INFORMATION
  Report Type: Other
  Country: CN (occurrence: CN)
  Receive Date: 20231211
  Receipt Date: 20231211
  Transmission Date: 20240110
  Serious: Yes (Other)
  Sender: FDA-Public Use
  Company Number: CN-PARATEK PHARMACEUTICALS, INC.-2023PTK00666

PATIENT
  Age: 90 Year
  Sex: Male
  Weight: 55 kg

DRUGS (3)
  1. NUZYRA [Suspect]
     Active Substance: OMADACYCLINE
     Indication: Pneumonia
     Dosage: 0.1 G, 1X/DAY
     Route: 041
     Dates: start: 20231026, end: 20231121
  2. CEFOPERAZONE SODIUM\SULBACTAM SODIUM [Suspect]
     Active Substance: CEFOPERAZONE SODIUM\SULBACTAM SODIUM
     Indication: Pneumonia
     Dosage: 3 G, 2X/DAY
     Route: 041
     Dates: start: 20231026, end: 20231114
  3. POTASSIUM CHLORIDE [Concomitant]
     Active Substance: POTASSIUM CHLORIDE
     Dosage: UNK
     Dates: start: 20231008, end: 20231121

REACTIONS (4)
  - Cholestasis [Recovering/Resolving]
  - Hepatic function abnormal [Recovering/Resolving]
  - Incorrect product administration duration [Recovered/Resolved]
  - Incorrect dose administered [Recovered/Resolved]

NARRATIVE: CASE EVENT DATE: 20231026
